FAERS Safety Report 9510049 (Version 1)
Quarter: 2013Q3

REPORT INFORMATION
  Report Type: Spontaneous
  Country: US (occurrence: US)
  Receive Date: 20130909
  Receipt Date: 20130909
  Transmission Date: 20140515
  Serious: Yes (Other)
  Sender: FDA-Public Use
  Company Number: US-BRISTOL-MYERS SQUIBB COMPANY-17138967

PATIENT
  Age: 57 Year
  Sex: Female

DRUGS (5)
  1. ABILIFY [Suspect]
     Dates: start: 20121115
  2. CYMBALTA [Concomitant]
  3. NAPROXEN [Concomitant]
  4. TYLENOL [Concomitant]
  5. IBUPROFEN [Concomitant]

REACTIONS (1)
  - Catatonia [Unknown]
